FAERS Safety Report 20247891 (Version 1)
Quarter: 2021Q4

REPORT INFORMATION
  Report Type: Spontaneous
  Country: US (occurrence: US)
  Receive Date: 20211229
  Receipt Date: 20211229
  Transmission Date: 20220303
  Serious: Yes (Death)
  Sender: FDA-Public Use
  Company Number: US-TEVA-2021-US-1993375

PATIENT
  Sex: Female

DRUGS (1)
  1. TRAZODONE [Suspect]
     Active Substance: TRAZODONE HYDROCHLORIDE
     Indication: Sleep disorder therapy
     Route: 065

REACTIONS (2)
  - Death [Fatal]
  - Drug ineffective [Unknown]
